FAERS Safety Report 13348828 (Version 2)
Quarter: 2017Q2

REPORT INFORMATION
  Report Type: Spontaneous
  Country: FR (occurrence: FR)
  Receive Date: 20170320
  Receipt Date: 20170405
  Transmission Date: 20170830
  Serious: Yes (Hospitalization)
  Sender: FDA-Public Use
  Company Number: FR-ROCHE-1907236

PATIENT
  Age: 41 Year
  Sex: Male
  Weight: 67.5 kg

DRUGS (7)
  1. RISPERDAL [Suspect]
     Active Substance: RISPERIDONE
     Indication: SCHIZOPHRENIA
     Dosage: REGULAR TREATMENT: 1MG/ML: 3MG IN THE EVENING
     Route: 048
  2. RISPERDAL [Suspect]
     Active Substance: RISPERIDONE
     Dosage: DOSE INCREASED TO 4MG IN THE EVENING
     Route: 048
     Dates: start: 20170209
  3. LOXAPAC [Suspect]
     Active Substance: LOXAPINE SUCCINATE
     Indication: SCHIZOPHRENIA
     Dosage: REGULA TREATMENT: LOXAPINE 25MG: 100 DROPS MORNING, MID-DAY, EVENING AND AT BED-TIME
     Route: 048
  4. IMOVANE [Concomitant]
     Active Substance: ZOPICLONE
     Dosage: AT BEDTIME
     Route: 065
  5. VALIUM [Suspect]
     Active Substance: DIAZEPAM
     Dosage: DOSE REDUCED TO 20 DROPS MORNING, MID-DAY, AND EVENING AND 30 DROPS AT BED-TIME
     Route: 048
     Dates: start: 20170208
  6. LOXAPAC [Suspect]
     Active Substance: LOXAPINE SUCCINATE
     Dosage: DOSE REDUCED TO 75 DROPS MORNING, MIDDAY AND EVENING AND 100 DROPS AT BED-TIME
     Route: 048
     Dates: start: 20170208
  7. VALIUM [Suspect]
     Active Substance: DIAZEPAM
     Indication: PRODUCT USED FOR UNKNOWN INDICATION
     Dosage: REGULAR TREATMENT: DIAZEPAM 1%: 30 DROPS MORNING, MID-DAY, EVENING AND AT BED-TIME
     Route: 048

REACTIONS (4)
  - Miosis [Recovered/Resolved]
  - Somnolence [Recovered/Resolved]
  - Hypotonia [Recovered/Resolved]
  - Altered state of consciousness [Recovered/Resolved]

NARRATIVE: CASE EVENT DATE: 20170212
